FAERS Safety Report 15186204 (Version 1)
Quarter: 2018Q3

REPORT INFORMATION
  Report Type: Report from Study
  Country: US (occurrence: US)
  Receive Date: 20180723
  Receipt Date: 20180723
  Transmission Date: 20181010
  Serious: No
  Sender: FDA-Public Use
  Company Number: US-EXELIXIS-CABO-18013053

PATIENT
  Age: 75 Year
  Sex: Male
  Weight: 81.63 kg

DRUGS (1)
  1. CABOMETYX [Suspect]
     Active Substance: CABOZANTINIB S-MALATE
     Indication: PRODUCT USED FOR UNKNOWN INDICATION
     Dosage: 60 MG, QD
     Route: 048

REACTIONS (8)
  - Oral mucosal eruption [Unknown]
  - Chills [Unknown]
  - Blister [Unknown]
  - Alopecia [Unknown]
  - Asthenia [Unknown]
  - Nasopharyngitis [Unknown]
  - Arthralgia [Unknown]
  - Fatigue [Unknown]

NARRATIVE: CASE EVENT DATE: 20180312
